FAERS Safety Report 18867973 (Version 1)
Quarter: 2021Q1

REPORT INFORMATION
  Report Type: Spontaneous
  Country: IT (occurrence: IT)
  Receive Date: 20210209
  Receipt Date: 20210209
  Transmission Date: 20210420
  Serious: Yes (Other)
  Sender: FDA-Public Use
  Company Number: IT-PFIZER INC-2021103659

PATIENT
  Age: 68 Year
  Sex: Male

DRUGS (3)
  1. IRINOTECAN KABI [Suspect]
     Active Substance: IRINOTECAN
     Indication: ADENOCARCINOMA OF COLON
     Dosage: 320 MG, CYCLIC
     Route: 042
     Dates: start: 20200915, end: 20210127
  2. FLUOROURACILE TEVA [Suspect]
     Active Substance: FLUOROURACIL
     Indication: ADENOCARCINOMA OF COLON
     Dosage: 5020 MG, CYCLIC
     Route: 042
     Dates: start: 20200915, end: 20210127
  3. ZIRABEV [Suspect]
     Active Substance: BEVACIZUMAB-BVZR
     Indication: ADENOCARCINOMA OF COLON
     Dosage: 335 MG, CYCLIC
     Route: 042
     Dates: start: 20200915, end: 20210127

REACTIONS (1)
  - Neutropenia [Recovering/Resolving]

NARRATIVE: CASE EVENT DATE: 20210127
